FAERS Safety Report 9193380 (Version 1)
Quarter: 2013Q1

REPORT INFORMATION
  Report Type: Spontaneous
  Country: US (occurrence: US)
  Receive Date: 20130327
  Receipt Date: 20130327
  Transmission Date: 20140127
  Serious: No
  Sender: FDA-Public Use
  Company Number: US-ASTRAZENECA-2013SE16487

PATIENT
  Age: 69 Year
  Sex: Male
  Weight: 81.6 kg

DRUGS (5)
  1. NEXIUM [Suspect]
     Indication: GASTROOESOPHAGEAL REFLUX DISEASE
     Dates: end: 201203
  2. NEXIUM [Suspect]
     Indication: PRECANCEROUS CELLS PRESENT
     Dates: end: 201203
  3. NEXIUM [Suspect]
     Indication: BARRETT^S OESOPHAGUS
     Dates: end: 201203
  4. PRILOSEC [Suspect]
     Indication: GASTROOESOPHAGEAL REFLUX DISEASE
     Route: 048
  5. PRILOSEC [Suspect]
     Indication: GASTROOESOPHAGEAL REFLUX DISEASE
     Dosage: OMEPRAZOLE, 20 MG, TWO TIMES A DAY
     Route: 048
     Dates: start: 2011

REACTIONS (3)
  - Dyspepsia [Not Recovered/Not Resolved]
  - Intentional drug misuse [Not Recovered/Not Resolved]
  - Drug dose omission [Unknown]
